FAERS Safety Report 22018012 (Version 1)
Quarter: 2023Q1

REPORT INFORMATION
  Report Type: Spontaneous
  Country: US (occurrence: US)
  Receive Date: 20230221
  Receipt Date: 20230221
  Transmission Date: 20230417
  Serious: No
  Sender: FDA-Public Use
  Company Number: US-MYLANLABS-2023M1015015

PATIENT
  Sex: Female
  Weight: 79.83 kg

DRUGS (1)
  1. PROCTOFOAM HC [Suspect]
     Active Substance: HYDROCORTISONE ACETATE\PRAMOXINE HYDROCHLORIDE
     Indication: Haemorrhoids
     Dosage: 1 PERCENT, BID(TWO TIMES A DAY FOR 10 DAYS )
     Route: 054

REACTIONS (2)
  - Incorrect dose administered [Unknown]
  - Product leakage [Unknown]
